FAERS Safety Report 21603472 (Version 1)
Quarter: 2022Q4

REPORT INFORMATION
  Report Type: Spontaneous
  Country: US (occurrence: US)
  Receive Date: 20221116
  Receipt Date: 20221116
  Transmission Date: 20230113
  Serious: No
  Sender: FDA-Public Use
  Company Number: US-002147023-NVSC2022US254746

PATIENT
  Sex: Female

DRUGS (1)
  1. XIIDRA [Suspect]
     Active Substance: LIFITEGRAST
     Indication: Product used for unknown indication
     Dosage: UNK UNK, BID (1 DROP)
     Route: 065
     Dates: start: 20221102

REACTIONS (4)
  - Eye irritation [Unknown]
  - Balance disorder [Unknown]
  - Myokymia [Unknown]
  - Anxiety disorder [Unknown]
